FAERS Safety Report 25245627 (Version 3)
Quarter: 2025Q2

REPORT INFORMATION
  Report Type: Spontaneous
  Country: FR (occurrence: FR)
  Receive Date: 20250428
  Receipt Date: 20250523
  Transmission Date: 20250716
  Serious: Yes (Hospitalization)
  Sender: ELI LILLY AND COMPANY
  Company Number: FR-ELI_LILLY_AND_COMPANY-FR202504021800

PATIENT
  Age: 75 Year
  Sex: Female

DRUGS (11)
  1. LEBRIKIZUMAB [Suspect]
     Active Substance: LEBRIKIZUMAB
     Indication: Dermatitis atopic
     Route: 058
  2. LEBRIKIZUMAB [Suspect]
     Active Substance: LEBRIKIZUMAB
     Route: 058
     Dates: start: 20250127
  3. LEBRIKIZUMAB [Suspect]
     Active Substance: LEBRIKIZUMAB
     Route: 058
     Dates: start: 20250210
  4. LEBRIKIZUMAB [Suspect]
     Active Substance: LEBRIKIZUMAB
     Route: 058
     Dates: start: 20250224
  5. LEBRIKIZUMAB [Suspect]
     Active Substance: LEBRIKIZUMAB
     Route: 058
     Dates: start: 20250317
  6. RISEDRONATE SODIUM [Concomitant]
     Active Substance: RISEDRONATE SODIUM
     Indication: Osteoporosis
     Dates: start: 202309
  7. RISEDRONATE SODIUM [Concomitant]
     Active Substance: RISEDRONATE SODIUM
     Route: 065
     Dates: start: 202501
  8. PRAZEPAM [Concomitant]
     Active Substance: PRAZEPAM
     Indication: Product used for unknown indication
     Route: 065
  9. NERISONE [Concomitant]
     Active Substance: DIFLUCORTOLONE VALERATE
     Indication: Product used for unknown indication
     Route: 065
  10. DIPROSONE [Concomitant]
     Active Substance: BETAMETHASONE DIPROPIONATE
     Indication: Product used for unknown indication
     Route: 065
  11. ICHTHAMMOL [Concomitant]
     Active Substance: ICHTHAMMOL
     Indication: Product used for unknown indication
     Route: 065

REACTIONS (5)
  - Erythema [Recovering/Resolving]
  - Dermatitis atopic [Recovering/Resolving]
  - Eosinophilia [Recovering/Resolving]
  - Conjunctivitis [Recovering/Resolving]
  - Dermatitis atopic [Unknown]

NARRATIVE: CASE EVENT DATE: 20250225
